FAERS Safety Report 25755930 (Version 1)
Quarter: 2025Q3

REPORT INFORMATION
  Report Type: Spontaneous
  Country: US (occurrence: US)
  Receive Date: 20250903
  Receipt Date: 20250903
  Transmission Date: 20251021
  Serious: Yes (Hospitalization, Other)
  Sender: GLAND PHARMA LTD
  Company Number: US-GLANDPHARMA-US-2025GLNLIT01735

PATIENT
  Age: 71 Year
  Sex: Female

DRUGS (3)
  1. HEPARIN SODIUM [Suspect]
     Active Substance: HEPARIN SODIUM
     Indication: Acute coronary syndrome
     Route: 065
  2. RASBURICASE [Concomitant]
     Active Substance: RASBURICASE
     Indication: Hyperleukocytosis
     Route: 065
  3. HYDROXYUREA [Concomitant]
     Active Substance: HYDROXYUREA
     Indication: Hyperleukocytosis
     Route: 065

REACTIONS (2)
  - Cerebral haematoma [Unknown]
  - Product use in unapproved indication [Unknown]
